FAERS Safety Report 8117337-5 (Version None)
Quarter: 2012Q1

REPORT INFORMATION
  Report Type: 
  Country: None (occurrence: None)
  Receive Date: 20120206
  Receipt Date: 20111220
  Transmission Date: 20120608
  Serious: Yes (Other)
  Sender: FDA-Public Use
  Company Number: PHHY2011TR73552

PATIENT
  Sex: Male

DRUGS (2)
  1. NO TREATMENT RECEIVED [Suspect]
     Indication: CHRONIC MYELOID LEUKAEMIA
  2. TASIGNA [Suspect]

REACTIONS (1)
  - SKIN REACTION [None]
